FAERS Safety Report 13353537 (Version 1)
Quarter: 2017Q1

REPORT INFORMATION
  Report Type: Spontaneous
  Country: US (occurrence: US)
  Receive Date: 20170321
  Receipt Date: 20170321
  Transmission Date: 20170429
  Serious: Yes (Other)
  Sender: FDA-Public Use
  Company Number: US-LUPIN (EUROPE) LIMITED-2017-01156

PATIENT
  Sex: Female
  Weight: 72.57 kg

DRUGS (2)
  1. LISINOPRIL AND HYDROCHLOROTHIAZIDE [Suspect]
     Active Substance: HYDROCHLOROTHIAZIDE\LISINOPRIL
     Indication: HYPERTENSION
     Dosage: UNK UNK, QD
     Route: 065
     Dates: start: 2015
  2. LISINOPRIL AND HYDROCHLOROTHIAZIDE [Suspect]
     Active Substance: HYDROCHLOROTHIAZIDE\LISINOPRIL
     Dosage: 20 MG/12.5 MG, QD
     Route: 048
     Dates: start: 20170117

REACTIONS (2)
  - Drug ineffective [Unknown]
  - Sarcoidosis [Unknown]
